FAERS Safety Report 5767770-1 (Version None)
Quarter: 2008Q2

REPORT INFORMATION
  Report Type: 
  Country: None (occurrence: None)
  Receive Date: 20080612
  Receipt Date: 20080602
  Transmission Date: 20081010
  Serious: Yes (Other)
  Sender: FDA-Public Use
  Company Number: FR-PFIZER INC-2008036188

PATIENT
  Sex: Male
  Weight: 85 kg

DRUGS (1)
  1. SUTENT [Suspect]
     Dosage: DAILY DOSE:37.5MG

REACTIONS (2)
  - PHLEBITIS [None]
  - PULMONARY EMBOLISM [None]
